FAERS Safety Report 5867273-X (Version None)
Quarter: 2008Q3

REPORT INFORMATION
  Report Type: 
  Country: None (occurrence: None)
  Receive Date: 20080902
  Receipt Date: 20080813
  Transmission Date: 20090109
  Serious: No
  Sender: FDA-Public Use
  Company Number: AR-AVENTIS-200818061GDDC

PATIENT
  Age: 28 Year
  Sex: Female

DRUGS (2)
  1. ARAVA [Suspect]
     Indication: RHEUMATOID ARTHRITIS
     Route: 048
     Dates: start: 20080301, end: 20080616
  2. ARAVA [Suspect]
     Route: 048
     Dates: start: 20080803, end: 20080812

REACTIONS (1)
  - DRUG EXPOSURE DURING PREGNANCY [None]
